FAERS Safety Report 5154364-4 (Version None)
Quarter: 2006Q4

REPORT INFORMATION
  Report Type: 
  Country: None (occurrence: None)
  Receive Date: 20061120
  Receipt Date: 20061109
  Transmission Date: 20070319
  Serious: Yes (Death)
  Sender: FDA-Public Use
  Company Number: AU-BOEHRINGER INGELHEIM PHARMACEUTICALS, INC.-2006-DE-05960GD

PATIENT
  Sex: Male

DRUGS (4)
  1. PREDNISONE TAB [Suspect]
     Indication: ASTHMA
     Dates: start: 19950101
  2. NEVIRAPINE [Suspect]
     Indication: HIV INFECTION
     Dates: start: 19991101, end: 20010330
  3. STAVUDINE [Suspect]
     Indication: HIV INFECTION
     Dates: start: 19991101, end: 20010330
  4. INDINIVIR SULFATE [Suspect]
     Indication: HIV INFECTION
     Dates: start: 19991101, end: 20010330

REACTIONS (1)
  - PULMONARY AMYLOIDOSIS [None]
